FAERS Safety Report 6306725-5 (Version None)
Quarter: 2009Q3

REPORT INFORMATION
  Report Type: 
  Country: None (occurrence: None)
  Receive Date: 20090812
  Receipt Date: 20090615
  Transmission Date: 20100115
  Serious: No
  Sender: FDA-Public Use
  Company Number: A0791561A

PATIENT
  Age: 60 Year
  Sex: Female

DRUGS (5)
  1. VERAMYST [Suspect]
     Indication: RHINITIS
     Dosage: 4PUFF PER DAY
     Route: 045
     Dates: start: 20090612
  2. RANITIDINE HYDROCHLORIDE [Suspect]
     Indication: GASTRIC DISORDER
     Dosage: 1TAB AT NIGHT
     Route: 048
     Dates: start: 20090612
  3. EFFEXOR [Concomitant]
  4. ASPIRIN [Concomitant]
  5. NEXIUM [Concomitant]

REACTIONS (2)
  - HEADACHE [None]
  - NECK PAIN [None]
